FAERS Safety Report 13065820 (Version 1)
Quarter: 2016Q4

REPORT INFORMATION
  Report Type: Spontaneous
  Country: CH (occurrence: CH)
  Receive Date: 20161227
  Receipt Date: 20161227
  Transmission Date: 20170207
  Serious: Yes (Other)
  Sender: FDA-Public Use
  Company Number: CH-BAYER-2016-241000

PATIENT
  Age: 35 Year
  Sex: Female

DRUGS (1)
  1. DACARBAZINE. [Suspect]
     Active Substance: DACARBAZINE
     Dosage: EVERY 3 WEEKS FOR 5 CYCLES
     Dates: start: 201411

REACTIONS (2)
  - Neutrophil count decreased [None]
  - Metastatic malignant melanoma [None]
